FAERS Safety Report 6671703-3 (Version None)
Quarter: 2010Q2

REPORT INFORMATION
  Report Type: 
  Country: None (occurrence: None)
  Receive Date: 20100407
  Receipt Date: 20100330
  Transmission Date: 20101027
  Serious: Yes (Other)
  Sender: FDA-Public Use
  Company Number: PHHY2010BR19659

PATIENT
  Sex: Female

DRUGS (7)
  1. TRILEPTAL [Suspect]
     Indication: HEADACHE
     Dosage: 300 MG IN MORNING AND 600 MG (ONE TABLET) AT NIGHT
     Route: 048
     Dates: start: 19850101
  2. TRILEPTAL [Suspect]
     Dosage: 300 MG, BID
     Route: 048
  3. TRILEPTAL [Suspect]
     Dosage: 300 MG IN MORNING AND 2 TABLETS OF 300 MG AT NIGHT
     Route: 048
  4. ATENOLOL [Concomitant]
     Indication: BLOOD PRESSURE
     Dosage: 1 DF, QD
  5. BETAHISTINE HYDROCHLORIDE [Concomitant]
     Indication: LABYRINTHITIS
     Dosage: 1 DF, BID
     Dates: start: 20100320
  6. ISOFLAVONES [Concomitant]
     Indication: MENOPAUSE
     Dosage: 1 DF DAILY
     Route: 048
     Dates: start: 20100320
  7. MECLOZINE HYDROCHLORIDE [Concomitant]
     Dosage: 1 DF, QHS
     Dates: start: 20100320

REACTIONS (6)
  - BLOOD PRESSURE INCREASED [None]
  - DIZZINESS [None]
  - HEADACHE [None]
  - LABYRINTHITIS [None]
  - MALAISE [None]
  - NAUSEA [None]
